FAERS Safety Report 15571695 (Version 1)
Quarter: 2018Q4

REPORT INFORMATION
  Report Type: Spontaneous
  Country: GB (occurrence: GB)
  Receive Date: 20181031
  Receipt Date: 20181031
  Transmission Date: 20190205
  Serious: Yes (Other)
  Sender: FDA-Public Use
  Company Number: GB-TEVA-2018-GB-970137

PATIENT
  Age: 58 Year
  Sex: Female
  Weight: 65 kg

DRUGS (12)
  1. COCODAMOL [Concomitant]
     Active Substance: ACETAMINOPHEN\CODEINE PHOSPHATE
     Dosage: TAKE ONE OR TWO 4 TIMES/DAY
     Dates: start: 20180808, end: 20180820
  2. AMOXICILLIN. [Concomitant]
     Active Substance: AMOXICILLIN
     Dosage: 3 DOSAGE FORMS DAILY;
     Dates: start: 20180923, end: 20180930
  3. CLARITHROMYCIN. [Suspect]
     Active Substance: CLARITHROMYCIN
     Indication: EAR INFECTION
     Dosage: 500 MILLIGRAM DAILY;
     Dates: start: 20180927, end: 20181004
  4. AMITRIPTYLINE HYDROCHLORIDE. [Concomitant]
     Active Substance: AMITRIPTYLINE HYDROCHLORIDE
     Dosage: 1 DOSAGE FORMS DAILY; NIGHT
     Dates: start: 20180504
  5. NAPROXEN. [Concomitant]
     Active Substance: NAPROXEN
     Dosage: 2 DOSAGE FORMS DAILY;
     Dates: start: 20180719
  6. GENTAMICIN. [Concomitant]
     Active Substance: GENTAMICIN
     Dosage: 8 GTT DAILY;
     Dates: start: 20180927, end: 20181002
  7. TRIMETHOPRIM. [Concomitant]
     Active Substance: TRIMETHOPRIM
     Dosage: 2 DOSAGE FORMS DAILY;
     Dates: start: 20180816, end: 20180819
  8. CAPSAICIN. [Concomitant]
     Active Substance: CAPSAICIN
     Dosage: 3-4 TIMES/DAY
     Dates: start: 20180719, end: 20180729
  9. VAGIFEM [Concomitant]
     Active Substance: ESTRADIOL
     Dosage: USE AS DIRECTED
     Dates: start: 20160708
  10. PARACETAMOL [Concomitant]
     Active Substance: ACETAMINOPHEN
     Dosage: TAKE 1 OR 2 4 TIMES/DAY
     Dates: start: 20171116
  11. DICLOFENAC DIETHYLAMINE [Concomitant]
     Active Substance: DICLOFENAC DIETHYLAMINE
     Dosage: 2 DOSAGE FORMS DAILY;
     Dates: start: 20180927
  12. GABAPENTIN. [Concomitant]
     Active Substance: GABAPENTIN
     Dosage: 3 DOSAGE FORMS DAILY;
     Dates: start: 20180830

REACTIONS (1)
  - Palpitations [Recovering/Resolving]
